FAERS Safety Report 21177096 (Version 1)
Quarter: 2022Q3

REPORT INFORMATION
  Report Type: Spontaneous
  Country: GB (occurrence: GB)
  Receive Date: 20220805
  Receipt Date: 20220805
  Transmission Date: 20221027
  Serious: Yes (Hospitalization, Other)
  Sender: FDA-Public Use
  Company Number: GB-BAYER-2022A092789

PATIENT
  Age: 31 Year
  Sex: Male

DRUGS (1)
  1. CIPROFLOXACIN [Suspect]
     Active Substance: CIPROFLOXACIN
     Indication: Urinary tract infection
     Dosage: UNK
     Dates: start: 202111, end: 202111

REACTIONS (5)
  - Suicidal ideation [None]
  - Burning sensation [None]
  - Ligament rupture [None]
  - Feeling abnormal [None]
  - Neuralgia [None]
